FAERS Safety Report 9147089 (Version 2)
Quarter: 2013Q2

REPORT INFORMATION
  Report Type: Spontaneous
  Country: BR (occurrence: BR)
  Receive Date: 20130307
  Receipt Date: 20130426
  Transmission Date: 20140414
  Serious: Yes (Hospitalization, Other)
  Sender: FDA-Public Use
  Company Number: BR-ABBOTT-13X-020-1056941-00

PATIENT
  Age: 55 Year
  Sex: Male

DRUGS (5)
  1. CREON [Suspect]
     Indication: PANCREATITIS CHRONIC
     Dosage: AT MEALS; THE MEDICATION WAS PRESCRIBED BY CATHETER
     Route: 048
     Dates: start: 2003
  2. CREON [Suspect]
     Indication: PANCREATIC INSUFFICIENCY
     Dosage: AT MEALS
     Route: 045
     Dates: start: 20130219
  3. AMIODARONE [Suspect]
     Indication: PRODUCT USED FOR UNKNOWN INDICATION
     Route: 042
  4. UNKNOWN SEDATIVE [Concomitant]
     Indication: PRODUCT USED FOR UNKNOWN INDICATION
  5. UNKNOWN MEDICATIONS [Concomitant]
     Indication: PRODUCT USED FOR UNKNOWN INDICATION
     Dosage: THE MEDICATIONS WAS PRESCRIBED BY CATHETER

REACTIONS (10)
  - Congestive cardiomyopathy [Unknown]
  - Cardiac failure [Unknown]
  - Ventricular tachycardia [Unknown]
  - Cardiogenic shock [Unknown]
  - Bradycardia [Unknown]
  - Depressed level of consciousness [Unknown]
  - Respiratory failure [Unknown]
  - Septic shock [Unknown]
  - Dyspnoea [Not Recovered/Not Resolved]
  - Tuberculosis [Unknown]
